FAERS Safety Report 7490782-7 (Version None)
Quarter: 2011Q2

REPORT INFORMATION
  Report Type: 
  Country: None (occurrence: None)
  Receive Date: 20110519
  Receipt Date: 20090814
  Transmission Date: 20111010
  Serious: Yes (Death)
  Sender: FDA-Public Use
  Company Number: US-BAYER-200929553NA

PATIENT
  Age: 69 Year
  Sex: Male
  Weight: 72.562 kg

DRUGS (24)
  1. TRASYLOL [Suspect]
     Indication: CORONARY ARTERY BYPASS
     Dosage: ILLEGIBLE LOADING DOSE FOLLOWED BY 50CC/HR
     Route: 042
     Dates: start: 20050511, end: 20050511
  2. DARVOCET-N 50 [Concomitant]
     Dosage: 1 TABLET, TID
     Route: 048
     Dates: start: 20050505
  3. BETAPACE [Concomitant]
     Dosage: 80 MG, BID
     Route: 048
  4. AGGRENOX [Concomitant]
     Dosage: 200/25 MG, BID
     Route: 048
  5. TORADOL [Concomitant]
     Dosage: 60 MG, UNK
     Route: 030
     Dates: start: 20050404
  6. PLAVIX [Concomitant]
     Dosage: 75 MG, QD
     Route: 048
  7. LEVAQUIN [Concomitant]
     Dosage: 500 MG, QD
     Route: 048
     Dates: start: 20050401
  8. NITROGLYCERIN [Concomitant]
     Dosage: UNK
  9. NEO-SYNEPHRINOL [Concomitant]
     Dosage: 30 MG, UNK
  10. PROPOFOL [Concomitant]
     Dosage: UNK
  11. ACETYLSALICYLIC ACID SRT [Concomitant]
     Dosage: 325 MG, QD
     Route: 048
  12. MORPHINE SULFATE [Concomitant]
     Dosage: 2MG/ML EVERY 5 MIN UNTIL STABLE
     Route: 042
     Dates: start: 20050505
  13. HEPARIN [Concomitant]
     Dosage: 5000 U, UNK
  14. PENTOTHAL [Concomitant]
     Dosage: UNK
  15. ACETAMINOPHEN [Concomitant]
     Dosage: 650 MG, TWO TABLETS EVERY 4
     Route: 048
  16. DOBUTAMINE HYDROCHLORIDE [Concomitant]
     Dosage: UNK
  17. MOTRIN [Concomitant]
     Dosage: 800 MG, TID
     Route: 048
     Dates: start: 20050401
  18. AZITHROMYCIN [Concomitant]
     Dosage: AS DIRECTED
     Route: 048
     Dates: start: 20050507
  19. LIDOCAINE [Concomitant]
     Dosage: UNK
  20. TRASYLOL [Suspect]
     Indication: AORTIC VALVE REPLACEMENT
  21. LESCOL XL [Concomitant]
     Dosage: 80 MG, HS
     Route: 048
  22. ASPIRIN [Concomitant]
     Dosage: 325 MG, QD
     Route: 048
  23. VERSED [Concomitant]
     Dosage: UNK
  24. ALBUMIN (HUMAN) [Concomitant]
     Dosage: UNK

REACTIONS (6)
  - CARDIAC DISORDER [None]
  - PAIN [None]
  - ANXIETY [None]
  - EMOTIONAL DISTRESS [None]
  - UNEVALUABLE EVENT [None]
  - INJURY [None]
